FAERS Safety Report 9646584 (Version 1)
Quarter: 2013Q4

REPORT INFORMATION
  Report Type: Spontaneous
  Country: US (occurrence: US)
  Receive Date: 20131025
  Receipt Date: 20131025
  Transmission Date: 20140711
  Serious: Yes (Hospitalization, Other)
  Sender: FDA-Public Use
  Company Number: US-JNJFOC-20131008387

PATIENT
  Sex: Male

DRUGS (3)
  1. TYLENOL [Suspect]
     Route: 048
  2. TYLENOL [Suspect]
     Indication: PAIN MANAGEMENT
     Route: 048
  3. VICODIN [Suspect]
     Indication: PAIN PROPHYLAXIS
     Route: 065

REACTIONS (2)
  - Acute hepatic failure [Unknown]
  - Wrong technique in drug usage process [Unknown]
